FAERS Safety Report 13594264 (Version 1)
Quarter: 2017Q2

REPORT INFORMATION
  Report Type: Report from Study
  Country: CN (occurrence: CN)
  Receive Date: 20170530
  Receipt Date: 20170530
  Transmission Date: 20170830
  Serious: Yes (Hospitalization, Other)
  Sender: FDA-Public Use
  Company Number: CN-VALIDUS PHARMACEUTICALS LLC-CN-2017VAL000808

PATIENT

DRUGS (1)
  1. BENAZEPRIL HYDROCHLORIDE. [Suspect]
     Active Substance: BENAZEPRIL HYDROCHLORIDE
     Indication: PRODUCT USED FOR UNKNOWN INDICATION
     Dosage: 5 MG, QD
     Route: 048

REACTIONS (20)
  - Hyperuricaemia [Recovering/Resolving]
  - Middle insomnia [Recovering/Resolving]
  - Chest pain [Recovering/Resolving]
  - Pleural effusion [Recovering/Resolving]
  - Bilirubin conjugated increased [Unknown]
  - Asphyxia [Recovering/Resolving]
  - Angina unstable [Recovering/Resolving]
  - Myocardial infarction [Recovering/Resolving]
  - Palpitations [Recovered/Resolved]
  - Pericardial effusion [Recovering/Resolving]
  - Hypertension [Recovering/Resolving]
  - Protein total decreased [Unknown]
  - Cardiac failure chronic [Recovering/Resolving]
  - Oedema peripheral [Recovering/Resolving]
  - Coronary artery disease [Recovering/Resolving]
  - Dyspnoea [Recovered/Resolved]
  - Arrhythmia [Recovering/Resolving]
  - N-terminal prohormone brain natriuretic peptide increased [Unknown]
  - Blood pressure decreased [Unknown]
  - Blood bilirubin increased [Unknown]
